FAERS Safety Report 8186154-2 (Version None)
Quarter: 2012Q1

REPORT INFORMATION
  Report Type: 
  Country: None (occurrence: None)
  Receive Date: 20120306
  Receipt Date: 20120302
  Transmission Date: 20120608
  Serious: No
  Sender: FDA-Public Use
  Company Number: US-PFIZER INC-2012056959

PATIENT
  Sex: Male

DRUGS (1)
  1. LYRICA [Suspect]
     Indication: PAIN
     Dosage: 150 MG, 2X/DAY
     Dates: start: 20120221

REACTIONS (1)
  - DRUG INEFFECTIVE [None]
